FAERS Safety Report 7596779 (Version 3)
Quarter: 2013Q2

REPORT INFORMATION
  Report Type: Spontaneous
  Country: US (occurrence: US)
  Receive Date: 20100920
  Receipt Date: 20130610
  Transmission Date: 20140414
  Serious: Yes (Hospitalization, Other)
  Sender: FDA-Public Use
  Company Number: US-ROCHE-694395

PATIENT
  Age: 34 Year
  Sex: Female
  Weight: 59.9 kg

DRUGS (4)
  1. ACCUTANE [Suspect]
     Indication: HIDRADENITIS
     Route: 048
     Dates: start: 20000802, end: 200101
  2. ZITHROMAX [Concomitant]
  3. PURINETHOL [Concomitant]
  4. TYLENOL WITH CODEINE [Concomitant]

REACTIONS (13)
  - Colitis ulcerative [Unknown]
  - Inflammatory bowel disease [Unknown]
  - Short-bowel syndrome [Unknown]
  - Pyoderma gangrenosum [Unknown]
  - Vaginal fistula [Unknown]
  - Small intestinal obstruction [Unknown]
  - Depression [Unknown]
  - Dry skin [Unknown]
  - Alanine aminotransferase increased [Recovered/Resolved]
  - Aspartate aminotransferase increased [Recovered/Resolved]
  - Blood cholesterol increased [Unknown]
  - Oral herpes [Unknown]
  - Erythema nodosum [Unknown]
